FAERS Safety Report 25672022 (Version 2)
Quarter: 2025Q4

REPORT INFORMATION
  Report Type: Report from Study
  Country: US (occurrence: US)
  Receive Date: 20250812
  Receipt Date: 20251124
  Transmission Date: 20260118
  Serious: Yes (Other)
  Sender: ABBVIE
  Company Number: US-ABBVIE-6409628

PATIENT
  Age: 66 Year
  Sex: Female

DRUGS (3)
  1. SKYRIZI [Suspect]
     Active Substance: RISANKIZUMAB-RZAA
     Indication: Psoriasis
     Route: 058
     Dates: start: 20250331
  2. DUPIXENT [Concomitant]
     Active Substance: DUPILUMAB
     Indication: Product used for unknown indication
  3. LIDOCAINE [Concomitant]
     Active Substance: LIDOCAINE
     Indication: Product used for unknown indication

REACTIONS (8)
  - Neck pain [Not Recovered/Not Resolved]
  - Scoliosis [Unknown]
  - Allergy to metals [Unknown]
  - Finger deformity [Unknown]
  - Peripheral swelling [Unknown]
  - Onychomadesis [Unknown]
  - Psoriasis [Unknown]
  - Osteotomy [Unknown]

NARRATIVE: CASE EVENT DATE: 20250101
